FAERS Safety Report 9003191 (Version 2)
Quarter: 2013Q1

REPORT INFORMATION
  Report Type: Report from Study
  Country: JP (occurrence: JP)
  Receive Date: 20130108
  Receipt Date: 20130222
  Transmission Date: 20140127
  Serious: Yes (Hospitalization)
  Sender: FDA-Public Use
  Company Number: JP-JNJFOC-20130102844

PATIENT
  Age: 78 Year
  Sex: Male
  Weight: 45 kg

DRUGS (3)
  1. REMINYL [Suspect]
     Indication: DEMENTIA ALZHEIMER^S TYPE
     Route: 048
     Dates: start: 20120308, end: 20120413
  2. REMINYL [Suspect]
     Indication: DEMENTIA ALZHEIMER^S TYPE
     Route: 048
     Dates: start: 20120223, end: 20120307
  3. VOLTAREN [Suspect]
     Indication: SPINAL OSTEOARTHRITIS
     Route: 054
     Dates: end: 20120413

REACTIONS (1)
  - Gastric ulcer [Recovered/Resolved]
